FAERS Safety Report 8033471-2 (Version None)
Quarter: 2012Q1

REPORT INFORMATION
  Report Type: 
  Country: None (occurrence: None)
  Receive Date: 20120110
  Receipt Date: 20120103
  Transmission Date: 20120608
  Serious: Yes (Other)
  Sender: FDA-Public Use
  Company Number: CA-JNJFOC-20120102414

PATIENT
  Sex: Female
  Weight: 79.1 kg

DRUGS (3)
  1. VITAMIN B-12 [Concomitant]
  2. REMICADE [Suspect]
     Indication: RHEUMATOID ARTHRITIS
     Route: 042
     Dates: start: 20110719
  3. IMURAN [Concomitant]

REACTIONS (2)
  - GOUT [None]
  - FIBROMYALGIA [None]
